FAERS Safety Report 6110554-5 (Version None)
Quarter: 2009Q1

REPORT INFORMATION
  Report Type: 
  Country: None (occurrence: None)
  Receive Date: 20090306
  Receipt Date: 20090226
  Transmission Date: 20090719
  Serious: Yes (Hospitalization, Other)
  Sender: FDA-Public Use
  Company Number: 186546USA

PATIENT
  Age: 72 Year
  Sex: Female
  Weight: 49.1 kg

DRUGS (2)
  1. METHOTREXATE [Suspect]
     Indication: RHEUMATOID ARTHRITIS
     Dosage: 2.5 MG, 8 IN 1 WK), ORAL
     Route: 048
     Dates: start: 20071001
  2. ETANERCEPT [Suspect]
     Dosage: 50 MG, 1 IN 1 WK, SUBCUTANEOUS
     Route: 058
     Dates: start: 20080530

REACTIONS (11)
  - BACK PAIN [None]
  - BALANCE DISORDER [None]
  - CYSTITIS [None]
  - ESCHERICHIA URINARY TRACT INFECTION [None]
  - FALL [None]
  - HAEMATOMA [None]
  - INJECTION SITE PAIN [None]
  - LOWER RESPIRATORY TRACT INFECTION [None]
  - NASOPHARYNGITIS [None]
  - OSTEOARTHRITIS [None]
  - WEIGHT DECREASED [None]
